FAERS Safety Report 7374669-6 (Version None)
Quarter: 2011Q1

REPORT INFORMATION
  Report Type: 
  Country: None (occurrence: None)
  Receive Date: 20110325
  Receipt Date: 20100809
  Transmission Date: 20110831
  Serious: No
  Sender: FDA-Public Use
  Company Number: US-MYLANLABS-2010S1012268

PATIENT
  Age: 37 Year
  Sex: Female

DRUGS (10)
  1. FENTANYL-100 [Suspect]
     Dosage: CHANGED PATCHES Q3D
     Route: 062
     Dates: start: 20100703, end: 20100703
  2. TIZANIDINE [Concomitant]
  3. FENTANYL-100 [Suspect]
     Indication: INTERVERTEBRAL DISC PROTRUSION
     Dosage: CHANGED PATCHES Q3D
     Route: 062
     Dates: start: 20091201, end: 20100630
  4. FENTANYL-100 [Suspect]
     Dosage: CHANGED PATCHES Q3D
     Route: 062
     Dates: start: 20100703, end: 20100703
  5. HYDROCODONE BITARTRATE [Concomitant]
     Indication: BREAKTHROUGH PAIN
  6. TOPAMAX [Concomitant]
  7. FENTANYL-100 [Suspect]
     Indication: BACK PAIN
     Dosage: CHANGED PATCHES Q3D
     Route: 062
     Dates: start: 20091201, end: 20100630
  8. FENTANYL-100 [Suspect]
     Dosage: CHANGED PATCHES Q3D
     Route: 062
     Dates: start: 20100703
  9. FENTANYL-100 [Suspect]
     Dosage: CHANGED PATCHES Q3D
     Route: 062
     Dates: start: 20100703
  10. LEVOTHYROXINE SODIUM [Concomitant]
     Indication: HYPOTHYROIDISM

REACTIONS (7)
  - SOMNOLENCE [None]
  - HALO VISION [None]
  - HALLUCINATION [None]
  - DIZZINESS [None]
  - DRUG EFFECT INCREASED [None]
  - FATIGUE [None]
  - ALTERED VISUAL DEPTH PERCEPTION [None]
